FAERS Safety Report 7007095-X (Version None)
Quarter: 2010Q3

REPORT INFORMATION
  Report Type: 
  Country: None (occurrence: None)
  Receive Date: 20100922
  Receipt Date: 20100916
  Transmission Date: 20110219
  Serious: Yes (Hospitalization)
  Sender: FDA-Public Use
  Company Number: US-ELI_LILLY_AND_COMPANY-US201009005255

PATIENT
  Age: 57 Year
  Sex: Male

DRUGS (13)
  1. PRASUGREL HYDROCHLORIDE [Suspect]
     Indication: ACUTE CORONARY SYNDROME
     Dosage: 60 MG, OTHER
     Dates: start: 20100322
  2. PRASUGREL HYDROCHLORIDE [Suspect]
     Dosage: 10 MG, DAILY (1/D)
     Route: 048
     Dates: start: 20100323
  3. ASPIRIN [Concomitant]
     Dosage: 325 MG, UNK
     Dates: start: 20100323
  4. ISOSORBIDE [Concomitant]
     Indication: NITRATE COMPOUND THERAPY
     Dosage: 30 MG, DAILY (1/D)
     Route: 048
     Dates: start: 20100401, end: 20100804
  5. HYDROMORPHONE HCL [Concomitant]
     Indication: PAIN IN EXTREMITY
     Dosage: 12 MG, 3/D
     Route: 048
     Dates: start: 20090401
  6. GABAPENTIN [Concomitant]
     Indication: PAIN IN EXTREMITY
     Dosage: 1800 MG, 3/D
     Route: 048
     Dates: start: 20060101
  7. LANTUS [Concomitant]
     Indication: DIABETES MELLITUS
     Dosage: 65 U, DAILY (1/D)
     Route: 058
     Dates: start: 19920101
  8. HUMALOG [Concomitant]
     Indication: DIABETES MELLITUS
     Dosage: UNK, AS NEEDED
     Route: 058
     Dates: start: 19920101
  9. ALPRAZOLAM [Concomitant]
     Indication: ANXIETY
     Dosage: 4 MG, 4/D
     Route: 048
     Dates: start: 20070101
  10. ZOLPIDEM [Concomitant]
     Indication: INSOMNIA
     Dosage: 5 MG, DAILY (1/D)
     Route: 048
     Dates: start: 20070101
  11. FENOFIBRATE [Concomitant]
     Indication: HYPERLIPIDAEMIA
     Dosage: 145 MG, DAILY (1/D)
     Route: 048
     Dates: start: 20100316
  12. ATENOLOL [Concomitant]
     Indication: BLOOD PRESSURE
     Dosage: 75 MG, 3/D
     Route: 048
     Dates: start: 20100401, end: 20100802
  13. RAMIPRIL [Concomitant]
     Indication: PROPHYLAXIS
     Dosage: 2.5 MG, DAILY (1/D)
     Route: 048
     Dates: start: 20100803

REACTIONS (2)
  - OXYGEN SATURATION DECREASED [None]
  - SINUS BRADYCARDIA [None]
